FAERS Safety Report 24462649 (Version 1)
Quarter: 2024Q4

REPORT INFORMATION
  Report Type: Report from Study
  Country: US (occurrence: US)
  Receive Date: 20241018
  Receipt Date: 20241018
  Transmission Date: 20250114
  Serious: Yes (Other)
  Sender: NOVARTIS
  Company Number: US-002147023-NVSC2024US202836

PATIENT
  Age: 65 Year
  Sex: Female

DRUGS (3)
  1. KISQALI [Suspect]
     Active Substance: RIBOCICLIB
     Indication: Product used for unknown indication
     Dosage: 600 MG, QD
     Route: 048
  2. VOLTAREN [Suspect]
     Active Substance: DICLOFENAC SODIUM
     Indication: Product used for unknown indication
     Dosage: 75 MG
     Route: 048
  3. FEMARA [Suspect]
     Active Substance: LETROZOLE
     Indication: Product used for unknown indication
     Dosage: 2.5 MG
     Route: 048

REACTIONS (19)
  - Hypothyroidism [Unknown]
  - Blindness [Unknown]
  - Cataract nuclear [Unknown]
  - Vitreous detachment [Unknown]
  - Rheumatoid arthritis [Unknown]
  - Amblyopia [Unknown]
  - Macular scar [Unknown]
  - Vitreous floaters [Unknown]
  - Hiatus hernia [Unknown]
  - Gastrooesophageal reflux disease [Unknown]
  - Oesophagitis [Unknown]
  - Helicobacter infection [Unknown]
  - Menopausal symptoms [Unknown]
  - Oral herpes [Unknown]
  - Arthritis viral [Unknown]
  - Fibromyalgia [Unknown]
  - Intervertebral disc disorder [Unknown]
  - Spinal stenosis [Unknown]
  - Vertebral foraminal stenosis [Unknown]
